FAERS Safety Report 11927428 (Version 2)
Quarter: 2017Q4

REPORT INFORMATION
  Report Type: Spontaneous
  Country: CA (occurrence: CA)
  Receive Date: 20160119
  Receipt Date: 20171215
  Transmission Date: 20180320
  Serious: Yes (Hospitalization)
  Sender: FDA-Public Use
  Company Number: CA-ABBVIE-16K-028-1539490-00

PATIENT
  Age: 70 Year
  Sex: Female

DRUGS (2)
  1. STELARA [Suspect]
     Active Substance: USTEKINUMAB
     Indication: PRODUCT USED FOR UNKNOWN INDICATION
     Route: 058
  2. HUMIRA [Suspect]
     Active Substance: ADALIMUMAB
     Indication: PRODUCT USED FOR UNKNOWN INDICATION
     Route: 058
     Dates: start: 20090330, end: 20100405

REACTIONS (21)
  - Fatigue [Unknown]
  - Hypersensitivity [Unknown]
  - Psoriasis [Unknown]
  - Weight increased [Unknown]
  - Depression [Unknown]
  - Productive cough [Recovered/Resolved]
  - Dry skin [Unknown]
  - Increased bronchial secretion [Recovering/Resolving]
  - Pharyngeal oedema [Unknown]
  - Swelling face [Unknown]
  - Lung disorder [Unknown]
  - Nasal septum deviation [Unknown]
  - Sleep apnoea syndrome [Recovering/Resolving]
  - Crying [Unknown]
  - Drug effect decreased [Unknown]
  - Increased upper airway secretion [Recovering/Resolving]
  - Blood creatinine increased [Recovering/Resolving]
  - Asthma [Unknown]
  - Cough [Unknown]
  - Skin exfoliation [Unknown]
  - Paraesthesia [Unknown]

NARRATIVE: CASE EVENT DATE: 2010
